FAERS Safety Report 20736613 (Version 2)
Quarter: 2022Q2

REPORT INFORMATION
  Report Type: Spontaneous
  Country: JP (occurrence: JP)
  Receive Date: 20220421
  Receipt Date: 20220608
  Transmission Date: 20220721
  Serious: Yes (Other)
  Sender: FDA-Public Use
  Company Number: A202200234-001

PATIENT

DRUGS (5)
  1. BENDAMUSTINE HYDROCHLORIDE [Suspect]
     Active Substance: BENDAMUSTINE HYDROCHLORIDE
     Indication: Follicular lymphoma
     Dosage: UNK, (CYCLE 1 GB THERAPY)
     Route: 042
  2. BENDAMUSTINE HYDROCHLORIDE [Suspect]
     Active Substance: BENDAMUSTINE HYDROCHLORIDE
     Dosage: UNK, (CYCLE 2 GB THERAPY)
     Route: 042
  3. GAZYVA [Suspect]
     Active Substance: OBINUTUZUMAB
     Indication: Follicular lymphoma
     Dosage: UNK, (CYCLE 1 GB THERAPY)
     Route: 041
  4. GAZYVA [Suspect]
     Active Substance: OBINUTUZUMAB
     Dosage: UNK, (CYCLE 2 GB THERAPY)
     Route: 041
  5. AMLODIPINE [Suspect]
     Active Substance: AMLODIPINE BESYLATE
     Indication: Product used for unknown indication
     Dosage: UNK
     Route: 065

REACTIONS (4)
  - Aplasia pure red cell [Recovering/Resolving]
  - Stomatitis [Recovering/Resolving]
  - Haemoglobin decreased [Unknown]
  - Rash papular [Recovered/Resolved]
